FAERS Safety Report 4789540-3 (Version None)
Quarter: 2005Q4

REPORT INFORMATION
  Report Type: 
  Country: None (occurrence: None)
  Receive Date: 20051005
  Receipt Date: 20051005
  Transmission Date: 20060501
  Serious: Yes (Life-Threatening)
  Sender: FDA-Public Use
  Company Number: None

PATIENT
  Age: 61 Year
  Sex: Female
  Weight: 49 kg

DRUGS (12)
  1. HEPARIN [Suspect]
     Indication: THROMBOSIS PROPHYLAXIS
     Dosage: 5000 UNITS SQ BID
     Route: 058
     Dates: start: 20050316, end: 20050329
  2. CLINDAMYCIN [Concomitant]
  3. DOCUSATE [Concomitant]
  4. FUROSEMIDE [Concomitant]
  5. LANSOPRAZOLE [Concomitant]
  6. LEVOFLOXACIN [Concomitant]
  7. VANCOMYCIN [Concomitant]
  8. AMANTIDINE [Concomitant]
  9. METOPROLOL [Concomitant]
  10. INSULIN [Concomitant]
  11. AMIODARONE [Concomitant]
  12. DOPAMINE [Concomitant]

REACTIONS (5)
  - ANGIOPATHY [None]
  - HEPARIN-INDUCED THROMBOCYTOPENIA [None]
  - LABORATORY TEST ABNORMAL [None]
  - POST PROCEDURAL COMPLICATION [None]
  - SKIN DISCOLOURATION [None]
